FAERS Safety Report 11860798 (Version 3)
Quarter: 2016Q1

REPORT INFORMATION
  Report Type: Spontaneous
  Country: TR (occurrence: TR)
  Receive Date: 20151222
  Receipt Date: 20160104
  Transmission Date: 20160526
  Serious: Yes (Other)
  Sender: FDA-Public Use
  Company Number: PHHY2015TR159111

PATIENT
  Age: 16 Year
  Sex: Male

DRUGS (2)
  1. DESFERAL [Suspect]
     Active Substance: DEFEROXAMINE MESYLATE
     Indication: LEUKAEMIA
     Dosage: 2500 MG, QD
     Route: 042
  2. DESFERAL [Suspect]
     Active Substance: DEFEROXAMINE MESYLATE
     Indication: THALASSAEMIA

REACTIONS (7)
  - Papule [Recovering/Resolving]
  - Coagulopathy [Recovering/Resolving]
  - Flushing [Recovering/Resolving]
  - Swelling face [Recovering/Resolving]
  - Product quality issue [Unknown]
  - Drug ineffective [Recovering/Resolving]
  - Drug hypersensitivity [Recovering/Resolving]
